FAERS Safety Report 6933661-3 (Version None)
Quarter: 2010Q3

REPORT INFORMATION
  Report Type: 
  Country: None (occurrence: None)
  Receive Date: 20100820
  Receipt Date: 20100817
  Transmission Date: 20110219
  Serious: Yes (Hospitalization)
  Sender: FDA-Public Use
  Company Number: US-PFIZER INC-2010069391

PATIENT
  Sex: Female
  Weight: 82.993 kg

DRUGS (26)
  1. BLINDED *IBUPROFEN [Suspect]
     Indication: OSTEOARTHRITIS
     Dosage: LOW DOSE
     Route: 048
     Dates: start: 20091218, end: 20100515
  2. NAPROXEN [Suspect]
     Indication: OSTEOARTHRITIS
     Dosage: LOW DOSE
     Route: 048
     Dates: start: 20091218, end: 20100515
  3. BLINDED *NO SUBJECT DRUG [Suspect]
     Indication: OSTEOARTHRITIS
     Dosage: LOW DOSE
     Route: 048
     Dates: start: 20091218, end: 20100515
  4. BLINDED *PLACEBO [Suspect]
     Indication: OSTEOARTHRITIS
     Dosage: LOW DOSE
     Route: 048
     Dates: start: 20091218, end: 20100515
  5. BLINDED CELECOXIB [Suspect]
     Indication: OSTEOARTHRITIS
     Dosage: LOW DOSE
     Route: 048
     Dates: start: 20091218, end: 20100515
  6. BLINDED IBUPROFEN [Suspect]
     Dosage: LOW DOSE
     Route: 048
     Dates: start: 20091218, end: 20100515
  7. NAPROXEN [Suspect]
     Dosage: LOW DOSE
     Route: 048
     Dates: start: 20091218, end: 20100515
  8. BLINDED *IBUPROFEN [Suspect]
     Indication: RHEUMATOID ARTHRITIS
  9. NAPROXEN [Suspect]
     Indication: RHEUMATOID ARTHRITIS
  10. BLINDED *NO SUBJECT DRUG [Suspect]
     Indication: RHEUMATOID ARTHRITIS
  11. BLINDED *PLACEBO [Suspect]
     Indication: RHEUMATOID ARTHRITIS
  12. BLINDED CELECOXIB [Suspect]
     Indication: RHEUMATOID ARTHRITIS
  13. BLINDED IBUPROFEN [Suspect]
  14. NAPROXEN [Suspect]
  15. NEXIUM [Concomitant]
     Indication: PROPHYLAXIS
     Dosage: 20 OR 40 MG
     Route: 048
     Dates: start: 20091218, end: 20100515
  16. ACETYLSALICYLIC ACID [Concomitant]
     Indication: CARDIOVASCULAR EVENT PROPHYLAXIS
     Dosage: 81 MG, 1X/DAY
     Route: 048
     Dates: start: 20060201
  17. PRAVASTATIN [Concomitant]
     Indication: DYSLIPIDAEMIA
     Dosage: 20 MG, 1X/DAY
     Route: 048
     Dates: start: 20060201
  18. LORAZEPAM [Concomitant]
     Indication: ANXIETY
     Dosage: 0.5 MG, AS NEEDED
     Route: 048
     Dates: start: 19900101
  19. LEXAPRO [Concomitant]
     Indication: DEPRESSION
     Dosage: 10 MG, 1X/DAY
     Route: 048
     Dates: start: 19900101
  20. FISH OIL [Concomitant]
     Indication: SUPPLEMENTATION THERAPY
     Dosage: 1000 MG, 1X/DAY
     Route: 048
     Dates: start: 20060201
  21. MULTI-VITAMINS [Concomitant]
     Indication: SUPPLEMENTATION THERAPY
     Dosage: ONE TABLET
     Route: 048
     Dates: start: 19900101
  22. VITAMIN E [Concomitant]
     Indication: SUPPLEMENTATION THERAPY
     Dosage: 400 IU, 1X/DAY
     Route: 048
     Dates: start: 20060201
  23. CALCIUM WITH VITAMIN D [Concomitant]
     Indication: SUPPLEMENTATION THERAPY
     Dosage: ONE TABLET
     Route: 048
     Dates: start: 19900101
  24. METFORMIN [Concomitant]
     Indication: DIABETES MELLITUS
     Dosage: 500 MG, 2X/DAY
     Route: 048
     Dates: start: 20060201
  25. CYCLOBENZAPRINE [Concomitant]
     Indication: BACK PAIN
     Dosage: 10 MG, AS NEEDED
     Route: 048
     Dates: start: 20100302
  26. DARVOCET-N 100 [Concomitant]
     Indication: BACK PAIN
     Dosage: 2 TABS
     Route: 048
     Dates: start: 20100404

REACTIONS (1)
  - HAEMATOMA [None]
